FAERS Safety Report 13262376 (Version 1)
Quarter: 2017Q1

REPORT INFORMATION
  Report Type: Spontaneous
  Country: FR (occurrence: FR)
  Receive Date: 20170223
  Receipt Date: 20170223
  Transmission Date: 20170428
  Serious: Yes (Hospitalization)
  Sender: FDA-Public Use
  Company Number: FR-BEH-2017078306

PATIENT
  Age: 63 Year
  Sex: Male

DRUGS (3)
  1. PRIVIGEN [Suspect]
     Active Substance: HUMAN IMMUNOGLOBULIN G
     Indication: IMMUNE THROMBOCYTOPENIC PURPURA
     Dosage: 90 G, 1 IN 1 DAY; 9 VIALS
     Route: 042
     Dates: start: 20170117, end: 20170117
  2. REVOLADE [Concomitant]
     Active Substance: ELTROMBOPAG
     Dosage: 75 MG, QD
     Route: 065
  3. SOLU-MEDROL [Concomitant]
     Active Substance: METHYLPREDNISOLONE SODIUM SUCCINATE
     Dosage: 120 MG (1 MG/KG), TOT
     Route: 042
     Dates: start: 20170117

REACTIONS (6)
  - Pulmonary embolism [Recovering/Resolving]
  - Fibrin D dimer increased [Recovering/Resolving]
  - Oxygen saturation decreased [Recovering/Resolving]
  - Blood gases abnormal [Recovering/Resolving]
  - Chest pain [Recovering/Resolving]
  - Hypoxia [Recovering/Resolving]

NARRATIVE: CASE EVENT DATE: 20170119
